FAERS Safety Report 7931992-1 (Version None)
Quarter: 2011Q4

REPORT INFORMATION
  Report Type: 
  Country: None (occurrence: None)
  Receive Date: 20111121
  Receipt Date: 20110813
  Transmission Date: 20120403
  Serious: No
  Sender: FDA-Public Use
  Company Number: US-BAYER-2011-076620

PATIENT
  Age: 52 Year
  Sex: Male
  Weight: 108 kg

DRUGS (8)
  1. ALEVE (CAPLET) [Suspect]
     Dosage: UNK (30-45)
     Route: 048
  2. AUGMENTIN [Concomitant]
  3. VITAMINS NOS [Concomitant]
  4. METFORMIN HCL [Concomitant]
  5. AVELOX [Concomitant]
  6. GLYBURIDE [Concomitant]
  7. CIPROFLOXACIN [Concomitant]
  8. BACTRIM [Concomitant]

REACTIONS (3)
  - RASH PUSTULAR [None]
  - RASH [None]
  - URTICARIA [None]
